FAERS Safety Report 8354656-1 (Version None)
Quarter: 2012Q2

REPORT INFORMATION
  Report Type: 
  Country: None (occurrence: None)
  Receive Date: 20120511
  Receipt Date: 20120507
  Transmission Date: 20120825
  Serious: Yes (Hospitalization)
  Sender: FDA-Public Use
  Company Number: US-BAYER-2012-045665

PATIENT
  Age: 29 Year
  Sex: Female
  Weight: 92.971 kg

DRUGS (23)
  1. HYDROCODONE BITARTRATE + ACETAMINOPHEN [Concomitant]
     Dosage: 5 MG AND 325 MG, ONE TABLET
     Route: 048
     Dates: start: 20041123, end: 20100602
  2. ADVAIR DISKUS 100/50 [Concomitant]
     Indication: SEASONAL ALLERGY
     Dosage: 250 AND 50 MCG
     Dates: start: 20050916, end: 20100504
  3. BUPROPION HYDROCHLORIDE [Concomitant]
     Dosage: 100 MG, BID
     Route: 048
     Dates: start: 20070417, end: 20090702
  4. IBUPROFEN [Concomitant]
     Dosage: 800 MG, QID
     Dates: start: 20060913, end: 20090428
  5. DROSPIRENONE AND ETHINYL ESTRADIOL [Suspect]
     Indication: ACNE
  6. PROAIR HFA [Concomitant]
     Dosage: 8.5 GM, INHALE TWO PUFFS EVERY 4 HOURS AS NEEDED
     Dates: start: 20070125, end: 20100303
  7. NABUMETONE [Concomitant]
     Indication: ARTHRALGIA
     Dosage: 500 MG, BID
     Dates: start: 20090428
  8. VENTOLIN [Concomitant]
     Dosage: UNK
     Dates: start: 20090428, end: 20090701
  9. DROSPIRENONE AND ETHINYL ESTRADIOL [Suspect]
     Indication: MENSTRUATION IRREGULAR
  10. PRASCION CLEANSER [Concomitant]
     Dosage: 107.3 MG, UNK
     Route: 061
     Dates: start: 20090416
  11. CHANTIX [Concomitant]
  12. YASMIN [Suspect]
     Indication: MENSTRUATION IRREGULAR
  13. SULFAMETHOXAZOLE AND TRIMETHOPRIM [Concomitant]
     Dosage: 800 AND 160, 1 TABLET TWICE DAILY FOR 7 DAYS
     Route: 048
     Dates: start: 20051125, end: 20090627
  14. NAPROXEN SODIUM [Concomitant]
     Dosage: 550 MG, 1 TABLET TWICE DAILY AS NEEDED
     Route: 048
     Dates: start: 20041029, end: 20090504
  15. IMITREX [Concomitant]
     Indication: MIGRAINE
     Dosage: 100 MG,  HALF TO 1
     Dates: start: 20090630, end: 20090710
  16. TYLENOL W/ CODEINE NO. 3 [Concomitant]
     Dosage: UNK UNK, PRN
     Route: 048
     Dates: start: 20050912, end: 20090702
  17. FLUCONAZOLE [Concomitant]
     Dosage: 100 MG, TAKE TWO TABLETS TODAY, THEN ONE DAILY FOR 6 DAYS
     Route: 048
     Dates: start: 20050916, end: 20091202
  18. CITALOPRAM [Concomitant]
     Dosage: UNK
     Route: 048
     Dates: start: 20070420, end: 20100618
  19. CLINDAMYCIN 1 PERCENT LOTION [Concomitant]
     Indication: ACNE
     Dosage: APPLY TO ACNE AREAS TWICE DAILY
     Route: 061
     Dates: start: 20090216, end: 20090416
  20. RANITIDINE [Concomitant]
     Dosage: 300 MG, QD, WHILE TAKING NABUMETONE
     Dates: start: 20090428
  21. YASMIN [Suspect]
     Indication: ACNE
  22. ALBUTEROL [Concomitant]
     Dosage: UNK UNK, PRN
     Dates: start: 20040920, end: 20090702
  23. OXYCODONE HCL AND ACETAMINOPHEN [Concomitant]

REACTIONS (1)
  - PULMONARY EMBOLISM [None]
